FAERS Safety Report 9058347 (Version 1)
Quarter: 2013Q1

REPORT INFORMATION
  Report Type: Spontaneous
  Country: US (occurrence: US)
  Receive Date: 20130211
  Receipt Date: 20130211
  Transmission Date: 20140127
  Serious: Yes (Other)
  Sender: FDA-Public Use
  Company Number: US-BAYER-2013-016365

PATIENT
  Age: 39 Year
  Sex: Female

DRUGS (11)
  1. YASMIN [Suspect]
  2. OCELLA [Suspect]
  3. PERCOCET [OXYCODONE HYDROCHLORIDE,OXYCODONE TEREPHTHALATE,PARACETA [Concomitant]
     Dosage: UNK
     Dates: start: 20100813
  4. FLEXERIL [Concomitant]
     Dosage: UNK
     Dates: start: 20100813
  5. NEURONTIN [Concomitant]
     Dosage: UNK
     Dates: start: 20100813
  6. OXYCODONE/APAP [Concomitant]
     Dosage: 7.5-325MG
  7. CARISOPRODOL [Concomitant]
     Dosage: 350 MG, UNK
  8. GABAPENTIN [Concomitant]
     Dosage: 300 MG, UNK
  9. ZOVIRAX [ACICLOVIR] [Concomitant]
  10. ACYCLOVIR [ACICLOVIR] [Concomitant]
     Dosage: 400 MG, UNK
  11. MOTRIN [Concomitant]

REACTIONS (1)
  - Deep vein thrombosis [None]
